FAERS Safety Report 8523706-1 (Version None)
Quarter: 2012Q3

REPORT INFORMATION
  Report Type: 
  Country: None (occurrence: None)
  Receive Date: 20120720
  Receipt Date: 20120710
  Transmission Date: 20120928
  Serious: Yes (Hospitalization, Other)
  Sender: FDA-Public Use
  Company Number: US-ELI_LILLY_AND_COMPANY-US201207003382

PATIENT
  Sex: Female

DRUGS (6)
  1. LANOXIN [Concomitant]
     Indication: CARDIAC DISORDER
  2. HUMULIN N [Suspect]
     Indication: DIABETES MELLITUS
     Dosage: 35 U, BID
  3. DARVOCET [Concomitant]
  4. COUMADIN [Concomitant]
  5. VITAMIN TAB [Concomitant]
  6. TYLENOL                                 /SCH/ [Concomitant]

REACTIONS (6)
  - DYSPNOEA [None]
  - DYSPHAGIA [None]
  - ASTHENIA [None]
  - LIVER DISORDER [None]
  - MALAISE [None]
  - CHILLS [None]
